FAERS Safety Report 4999682-5 (Version None)
Quarter: 2006Q2

REPORT INFORMATION
  Report Type: 
  Country: None (occurrence: None)
  Receive Date: 20060509
  Receipt Date: 20060509
  Transmission Date: 20061013
  Serious: Yes (Hospitalization)
  Sender: FDA-Public Use
  Company Number: None

PATIENT
  Age: 43 Year
  Sex: Female
  Weight: 54 kg

DRUGS (1)
  1. PROPOFOL [Suspect]
     Indication: SEDATION
     Dosage: 10-80 MCG/KG/MIN IV
     Route: 042
     Dates: start: 20050916, end: 20050919

REACTIONS (2)
  - ABDOMINAL DISTENSION [None]
  - PANCREATITIS [None]
